FAERS Safety Report 15481383 (Version 2)
Quarter: 2018Q4

REPORT INFORMATION
  Report Type: Spontaneous
  Country: NL (occurrence: NL)
  Receive Date: 20181010
  Receipt Date: 20181221
  Transmission Date: 20190205
  Serious: Yes (Other)
  Sender: FDA-Public Use
  Company Number: NL-TEVA-2018-NL-962445

PATIENT
  Age: 68 Year
  Sex: Male
  Weight: 104 kg

DRUGS (5)
  1. ATENOLOL 12,5MG [Concomitant]
     Dosage: 12 MILLIGRAM DAILY; DAY
     Route: 065
     Dates: start: 201707
  2. MIRTAZAPINE. [Concomitant]
     Active Substance: MIRTAZAPINE
     Dosage: 1 DOSAGE FORMS DAILY; 3,5MG/DAY
     Route: 065
     Dates: start: 201505
  3. TAMSOLUSINE 0.4 MG [Concomitant]
     Dosage: 0 MILLIGRAM DAILY; DAY
     Route: 065
     Dates: start: 201708
  4. VERAPAMIL [Suspect]
     Active Substance: VERAPAMIL HYDROCHLORIDE
     Indication: ATRIAL FIBRILLATION
     Dosage: 120 MILLIGRAM DAILY; 1X PER DAG 1 STUK
     Route: 065
     Dates: start: 20170901, end: 20171001
  5. ACENOCOUMAROL [Concomitant]
     Active Substance: ACENOCOUMAROL
     Dosage: 1 DOSAGE FORMS DAILY; 2, 5MG AVERAGE PER DAY
     Route: 065
     Dates: start: 201508

REACTIONS (3)
  - Atrial fibrillation [Recovered/Resolved]
  - Optic atrophy [Not Recovered/Not Resolved]
  - Visual acuity reduced [Not Recovered/Not Resolved]

NARRATIVE: CASE EVENT DATE: 20170905
